FAERS Safety Report 6201583-1 (Version None)
Quarter: 2009Q2

REPORT INFORMATION
  Report Type: 
  Country: None (occurrence: None)
  Receive Date: 20090526
  Receipt Date: 20090519
  Transmission Date: 20091009
  Serious: Yes (Other)
  Sender: FDA-Public Use
  Company Number: US-TEVA-195632USA

PATIENT
  Age: 49 Year
  Sex: Male

DRUGS (3)
  1. ROPINIROLE TABLETS 0.25MG, 5MG, 1MG, 2MG, 3MG, 4MG, 5MG (BASE) [Suspect]
     Indication: PARKINSON'S DISEASE
     Dosage: 24MG DAILY
     Route: 048
  2. ROPINIROLE TABLETS 0.25MG, 5MG, 1MG, 2MG, 3MG, 4MG, 5MG (BASE) [Suspect]
     Dosage: 21MG DAILY
     Route: 048
  3. ROPINIROLE TABLETS 0.25MG, 5MG, 1MG, 2MG, 3MG, 4MG, 5MG (BASE) [Suspect]
     Dosage: 15MG DAILY
     Route: 048

REACTIONS (2)
  - HYPERSEXUALITY [None]
  - PATHOLOGICAL GAMBLING [None]
